FAERS Safety Report 8284988-7 (Version None)
Quarter: 2012Q2

REPORT INFORMATION
  Report Type: 
  Country: None (occurrence: None)
  Receive Date: 20120413
  Receipt Date: 20120209
  Transmission Date: 20120825
  Serious: No
  Sender: FDA-Public Use
  Company Number: US-ASTRAZENECA-2009SE24067

PATIENT
  Age: 52 Year
  Sex: Female
  Weight: 47.2 kg

DRUGS (8)
  1. PIROXICAM [Concomitant]
  2. SKELAXIN [Concomitant]
  3. GLUCOSAMINE [Concomitant]
  4. EXCEDRIN BACK AND BODY [Concomitant]
  5. NEXIUM [Suspect]
     Indication: GASTROOESOPHAGEAL REFLUX DISEASE
     Route: 048
  6. HYDROCODONE BITARTRATE [Concomitant]
  7. NEURONTIN [Concomitant]
  8. NEXIUM [Suspect]
     Route: 048

REACTIONS (6)
  - DRUG DOSE OMISSION [None]
  - DYSPEPSIA [None]
  - GASTRIC DISORDER [None]
  - GASTROOESOPHAGEAL REFLUX DISEASE [None]
  - DYSGEUSIA [None]
  - INAPPROPRIATE SCHEDULE OF DRUG ADMINISTRATION [None]
